FAERS Safety Report 24164668 (Version 1)
Quarter: 2024Q3

REPORT INFORMATION
  Report Type: Spontaneous
  Country: US (occurrence: US)
  Receive Date: 20240801
  Receipt Date: 20240801
  Transmission Date: 20241017
  Serious: No
  Sender: SANDOZ
  Company Number: US-SANDOZ-SDZ2024US069568

PATIENT
  Sex: Male

DRUGS (4)
  1. AMLODIPINE [Suspect]
     Active Substance: AMLODIPINE BESYLATE
     Indication: Product use in unapproved indication
     Dosage: 10 MG
     Route: 065
  2. LISINOPRIL [Suspect]
     Active Substance: LISINOPRIL
     Indication: Product use in unapproved indication
     Dosage: 10 MG
     Route: 065
  3. TELMISARTAN [Suspect]
     Active Substance: TELMISARTAN
     Indication: Product use in unapproved indication
     Dosage: 80 MG, QD
     Route: 065
  4. VALSARTAN [Suspect]
     Active Substance: VALSARTAN
     Indication: Product use in unapproved indication
     Dosage: 160 MG, QD
     Route: 065

REACTIONS (3)
  - Blood pressure systolic increased [Unknown]
  - Mouth swelling [Unknown]
  - Drug ineffective [Unknown]
